FAERS Safety Report 13656211 (Version 1)
Quarter: 2020Q3

REPORT INFORMATION
  Report Type: Report from Study
  Country: PL (occurrence: PL)
  Receive Date: 20170615
  Receipt Date: 20170615
  Transmission Date: 20201104
  Serious: Yes (Hospitalization)
  Sender: FDA-Public Use
  Company Number: PL-ASTRAZENECA-2016SE69347

PATIENT
  Age: 22974 Day
  Sex: Female

DRUGS (13)
  1. TREMELIMUMAB. [Suspect]
     Active Substance: TREMELIMUMAB
     Indication: NON-SMALL CELL LUNG CANCER
     Dosage: 74.0MG ONCE/SINGLE ADMINISTRATION
     Route: 042
     Dates: start: 20160129, end: 20160129
  2. MEDI4736 [Suspect]
     Active Substance: DURVALUMAB
     Indication: NON-SMALL CELL LUNG CANCER
     Dosage: 1440.0MG ONCE/SINGLE ADMINISTRATION
     Route: 042
     Dates: start: 20160226, end: 20160226
  3. TREMELIMUMAB. [Suspect]
     Active Substance: TREMELIMUMAB
     Indication: NON-SMALL CELL LUNG CANCER
     Dosage: 72.0MG ONCE/SINGLE ADMINISTRATION
     Route: 042
     Dates: start: 20160226, end: 20160226
  4. MEDI4736 [Suspect]
     Active Substance: DURVALUMAB
     Indication: NON-SMALL CELL LUNG CANCER
     Dosage: 740.0MG ONCE/SINGLE ADMINISTRATION
     Route: 042
     Dates: start: 20160520, end: 20160520
  5. MEDI4736 [Suspect]
     Active Substance: DURVALUMAB
     Indication: NON-SMALL CELL LUNG CANCER
     Dosage: 730.0MG ONCE/SINGLE ADMINISTRATION
     Route: 042
     Dates: start: 20160623, end: 20160623
  6. METOCARD ZK [Concomitant]
     Active Substance: METOPROLOL TARTRATE
     Indication: ATRIAL FIBRILLATION
     Route: 048
  7. TREMELIMUMAB. [Suspect]
     Active Substance: TREMELIMUMAB
     Indication: NON-SMALL CELL LUNG CANCER
     Dosage: 72.0MG ONCE/SINGLE ADMINISTRATION
     Route: 042
     Dates: start: 20160422, end: 20160422
  8. MEDI4736 [Suspect]
     Active Substance: DURVALUMAB
     Indication: NON-SMALL CELL LUNG CANCER
     Dosage: 1440.0MG ONCE/SINGLE ADMINISTRATION
     Route: 042
     Dates: start: 20160422, end: 20160422
  9. TREMELIMUMAB. [Suspect]
     Active Substance: TREMELIMUMAB
     Indication: NON-SMALL CELL LUNG CANCER
     Dosage: 72.0MG ONCE/SINGLE ADMINISTRATION
     Route: 042
     Dates: start: 20160324, end: 20160324
  10. MEDI4736 [Suspect]
     Active Substance: DURVALUMAB
     Indication: NON-SMALL CELL LUNG CANCER
     Dosage: 1480.0MG ONCE/SINGLE ADMINISTRATION
     Route: 042
     Dates: start: 20160129, end: 20160129
  11. PRADAXA [Concomitant]
     Active Substance: DABIGATRAN ETEXILATE MESYLATE
     Indication: ATRIAL FIBRILLATION
     Dosage: UNKNOWN DOSE, DAILY
     Route: 048
  12. MEDI4736 [Suspect]
     Active Substance: DURVALUMAB
     Indication: NON-SMALL CELL LUNG CANCER
     Dosage: 730.0MG ONCE/SINGLE ADMINISTRATION
     Route: 042
     Dates: start: 20160603, end: 20160603
  13. MEDI4736 [Suspect]
     Active Substance: DURVALUMAB
     Indication: NON-SMALL CELL LUNG CANCER
     Dosage: 1440.0MG ONCE/SINGLE ADMINISTRATION
     Route: 042
     Dates: start: 20160324, end: 20160324

REACTIONS (1)
  - Pneumonitis [Recovered/Resolved]

NARRATIVE: CASE EVENT DATE: 20160608
